FAERS Safety Report 17354416 (Version 12)
Quarter: 2025Q1

REPORT INFORMATION
  Report Type: Report from Study
  Country: US (occurrence: US)
  Receive Date: 20200131
  Receipt Date: 20250111
  Transmission Date: 20250409
  Serious: Yes (Hospitalization, Other)
  Sender: AMNEAL
  Company Number: US-AMNEAL PHARMACEUTICALS-2020-AMRX-00245

PATIENT
  Age: 83 Year
  Sex: Female
  Weight: 47.619 kg

DRUGS (10)
  1. CARBIDOPA\LEVODOPA [Suspect]
     Active Substance: CARBIDOPA\LEVODOPA
     Indication: Parkinson^s disease
     Route: 048
     Dates: start: 2010
  2. CARBIDOPA\LEVODOPA [Suspect]
     Active Substance: CARBIDOPA\LEVODOPA
     Dosage: (61.25/245 MG) 1 CAPSULES, 3 /DAY
     Route: 048
     Dates: start: 20231115
  3. CARBIDOPA\LEVODOPA [Suspect]
     Active Substance: CARBIDOPA\LEVODOPA
     Dosage: 23.75-245 MG; 4 CAPSULES, 3 /DAY
     Route: 048
  4. CARBIDOPA\LEVODOPA [Suspect]
     Active Substance: CARBIDOPA\LEVODOPA
     Dosage: (61.25/245 MG) 1 CAPSULES, 3 /DAY
     Route: 048
  5. RASAGILINE [Suspect]
     Active Substance: RASAGILINE
     Indication: Product used for unknown indication
     Dosage: 1 TABLETS (1 MG TOTAL), ONCE A DAY
     Route: 048
     Dates: start: 20220518, end: 20240603
  6. SYNTHROID [Concomitant]
     Active Substance: LEVOTHYROXINE SODIUM
     Indication: Product used for unknown indication
     Dosage: 1 TABLETS (88 MCG TOTAL), EVERY MORNING
     Route: 048
  7. METOPROLOL [Concomitant]
     Active Substance: METOPROLOL
     Indication: Product used for unknown indication
     Route: 065
  8. CYANOCOBALAMIN [Concomitant]
     Active Substance: CYANOCOBALAMIN
     Indication: Product used for unknown indication
     Dosage: 1 MILLILITER (1000 MCG/ML), 1 /MONTH
     Route: 030
     Dates: start: 20200602
  9. PRINIVIL [Concomitant]
     Active Substance: LISINOPRIL
     Indication: Product used for unknown indication
     Dosage: 1 TABLETS (10 MG TOTAL), ONCE A DAY
     Route: 048
  10. LOPRESSOR [Concomitant]
     Active Substance: METOPROLOL TARTRATE
     Indication: Product used for unknown indication
     Dosage: 0.5 TABLETS (12.5 MG TOTAL), TWICE DAILY
     Route: 048

REACTIONS (17)
  - Hip fracture [Recovered/Resolved]
  - Hip fracture [Unknown]
  - Hip fracture [Unknown]
  - Fall [Unknown]
  - Shoulder fracture [Unknown]
  - Eyelid ptosis [Unknown]
  - Colectomy [Unknown]
  - Malignant melanoma [Unknown]
  - Basal cell carcinoma [Unknown]
  - Hospitalisation [Unknown]
  - Balance disorder [Recovering/Resolving]
  - Faeces discoloured [Unknown]
  - Contusion [Unknown]
  - Peripheral swelling [Unknown]
  - Dizziness [Unknown]
  - Nausea [Unknown]
  - Product use issue [Unknown]

NARRATIVE: CASE EVENT DATE: 20210129
